FAERS Safety Report 4280812-8 (Version None)
Quarter: 2004Q1

REPORT INFORMATION
  Report Type: 
  Country: None (occurrence: None)
  Receive Date: 20040127
  Receipt Date: 20040112
  Transmission Date: 20041129
  Serious: Yes (Hospitalization)
  Sender: FDA-Public Use
  Company Number: F01200400037

PATIENT
  Age: 58 Year
  Sex: Male

DRUGS (2)
  1. (OXALIPLATIN) - SOLUTION - 130 MG/M2 [Suspect]
     Dosage: 130 MG/M2 Q3W INTRAVENOUS NOS
     Route: 042
     Dates: start: 20031226, end: 20031226
  2. (CAPECITABINE) - TABLET - 2000 MG/M2 [Suspect]
     Dosage: (200 MG/M2 TWICE DAILY PER OS FOR 2 WEEKS) ORAL
     Route: 048
     Dates: start: 20031226, end: 20031226

REACTIONS (4)
  - DYSPNOEA [None]
  - SYNCOPE [None]
  - TROPONIN I INCREASED [None]
  - VENTRICULAR TACHYCARDIA [None]
